FAERS Safety Report 16677563 (Version 1)
Quarter: 2019Q3

REPORT INFORMATION
  Report Type: Spontaneous
  Country: US (occurrence: US)
  Receive Date: 20190621
  Receipt Date: 20190621
  Transmission Date: 20191004
  Serious: Yes (Hospitalization)
  Sender: FDA-Public Use
  Company Number: None

PATIENT
  Age: 24 Year
  Sex: Male
  Weight: 72 kg

DRUGS (1)
  1. BUPROPION. [Suspect]
     Active Substance: BUPROPION
     Indication: SCHIZOPHRENIA
     Route: 048
     Dates: start: 20190611, end: 20190620

REACTIONS (3)
  - Paranoia [None]
  - Hallucination [None]
  - Delusion [None]

NARRATIVE: CASE EVENT DATE: 20190620
